FAERS Safety Report 10610287 (Version 4)
Quarter: 2015Q3

REPORT INFORMATION
  Report Type: Spontaneous
  Country: IS (occurrence: IS)
  Receive Date: 20141126
  Receipt Date: 20150811
  Transmission Date: 20151125
  Serious: Yes (Other)
  Sender: FDA-Public Use
  Company Number: IS-009507513-1411DNK011492

PATIENT
  Age: 17 Year
  Sex: Female

DRUGS (1)
  1. IMPLANON [Suspect]
     Active Substance: ETONOGESTREL
     Indication: CONTRACEPTION
     Dosage: 68 MG, LEFT ARM(IN THE SULCUS BICIPITALIS MEDIALIS)
     Route: 059
     Dates: start: 20140704

REACTIONS (5)
  - Device difficult to use [Recovered/Resolved]
  - Skin necrosis [Unknown]
  - Implant site necrosis [Unknown]
  - Implant site pain [Unknown]
  - Medical device complication [Recovered/Resolved]

NARRATIVE: CASE EVENT DATE: 2014
